FAERS Safety Report 7888133-9 (Version None)
Quarter: 2011Q4

REPORT INFORMATION
  Report Type: 
  Country: None (occurrence: None)
  Receive Date: 20111101
  Receipt Date: 20111017
  Transmission Date: 20120403
  Serious: Yes (Hospitalization)
  Sender: FDA-Public Use
  Company Number: AUR-APL-2011-05553

PATIENT
  Age: 82 Year
  Sex: Female

DRUGS (13)
  1. ARICEPT [Suspect]
     Indication: PRODUCT USED FOR UNKNOWN INDICATION
     Dosage: 10 MG (10 MG, 1 IN  1 D),ORAL
     Route: 048
     Dates: start: 20110201, end: 20110823
  2. CRESTOR [Concomitant]
  3. LANTUS [Concomitant]
  4. SOTALOL HCL [Concomitant]
  5. METFORMIN HCL [Suspect]
     Indication: PRODUCT USED FOR UNKNOWN INDICATION
     Dosage: ORAL
     Route: 048
     Dates: end: 20110808
  6. COUMADIN [Concomitant]
  7. STABLON (TIANEPTINE) [Suspect]
     Indication: PRODUCT USED FOR UNKNOWN INDICATION
     Dosage: 25 M, 1 D, ORAL
     Route: 048
     Dates: start: 20110601, end: 20110829
  8. NEXIUM [Suspect]
     Indication: PRODUCT USED FOR UNKNOWN INDICATION
     Dosage: 20 MG, 1 D
     Dates: end: 20110829
  9. FERROUS SULFATE TAB [Concomitant]
  10. SITAGLIPTIN [Suspect]
     Indication: PRODUCT USED FOR UNKNOWN INDICATION
     Dosage: ORAL
     Route: 048
     Dates: end: 20110808
  11. APPROVEL (IRBESARTAN) [Concomitant]
  12. DOMPERIDONE (DOMPERIDONE) [Concomitant]
  13. FUROSEMIDE [Suspect]
     Indication: PRODUCT USED FOR UNKNOWN INDICATION
     Dosage: ORAL
     Route: 048
     Dates: end: 20110808

REACTIONS (2)
  - CHOLELITHIASIS [None]
  - CYTOLYTIC HEPATITIS [None]
